FAERS Safety Report 21890223 (Version 1)
Quarter: 2023Q1

REPORT INFORMATION
  Report Type: Spontaneous
  Country: IT (occurrence: IT)
  Receive Date: 20230120
  Receipt Date: 20230120
  Transmission Date: 20230418
  Serious: Yes (Hospitalization)
  Sender: FDA-Public Use
  Company Number: None

PATIENT
  Age: 74 Year
  Sex: Male
  Weight: 94 kg

DRUGS (8)
  1. CYRAMZA [Suspect]
     Active Substance: RAMUCIRUMAB
     Indication: Gastric cancer
     Dosage: 650 MG, UNKNOWN
     Route: 042
     Dates: start: 20220819, end: 20220819
  2. CYRAMZA [Suspect]
     Active Substance: RAMUCIRUMAB
     Dosage: 650 MG, UNKNOWN
     Route: 042
     Dates: start: 20220819, end: 20220819
  3. CYRAMZA [Suspect]
     Active Substance: RAMUCIRUMAB
     Dosage: 650 MG, UNKNOWN
     Route: 042
     Dates: start: 20220819, end: 20220819
  4. TAMSULOSIN HYDROCHLORIDE [Concomitant]
     Active Substance: TAMSULOSIN HYDROCHLORIDE
     Indication: Product used for unknown indication
  5. LUCEN [ESOMEPRAZOLE MAGNESIUM] [Concomitant]
     Indication: Product used for unknown indication
     Dosage: 40 MG, UNKNOWN
  6. TEVA VALSARTAN/HCTZ [Concomitant]
     Indication: Product used for unknown indication
  7. CRESTOR [Concomitant]
     Active Substance: ROSUVASTATIN CALCIUM
     Indication: Product used for unknown indication
  8. PLAVIX [Concomitant]
     Active Substance: CLOPIDOGREL BISULFATE
     Indication: Product used for unknown indication

REACTIONS (4)
  - Dysarthria [Recovered/Resolved]
  - Carotid artery stenosis [Recovered/Resolved]
  - Asthenia [Recovering/Resolving]
  - Ischaemic stroke [Recovered/Resolved]

NARRATIVE: CASE EVENT DATE: 20220828
